FAERS Safety Report 25221497 (Version 2)
Quarter: 2025Q2

REPORT INFORMATION
  Report Type: Spontaneous
  Country: US (occurrence: US)
  Receive Date: 20250421
  Receipt Date: 20250513
  Transmission Date: 20250717
  Serious: No
  Sender: SANOFI AVENTIS
  Company Number: US-SA-2025SA113346

PATIENT
  Age: 40 Year
  Sex: Female

DRUGS (1)
  1. DUPIXENT [Suspect]
     Active Substance: DUPILUMAB
     Indication: Dermatitis atopic
     Dosage: 300 MG, QOW
     Route: 058
     Dates: start: 202407

REACTIONS (6)
  - Skin reaction [Unknown]
  - Inflammation [Unknown]
  - Acne [Unknown]
  - Erythema [Unknown]
  - Papule [Not Recovered/Not Resolved]
  - Therapeutic response decreased [Not Recovered/Not Resolved]
